FAERS Safety Report 5730713-0 (Version None)
Quarter: 2008Q2

REPORT INFORMATION
  Report Type: 
  Country: None (occurrence: None)
  Receive Date: 20080507
  Receipt Date: 20080425
  Transmission Date: 20081010
  Serious: Yes (Hospitalization)
  Sender: FDA-Public Use
  Company Number: KR-PFIZER INC-2007002893

PATIENT
  Sex: Female
  Weight: 50.5 kg

DRUGS (5)
  1. SU-011,248 [Suspect]
     Indication: GASTROINTESTINAL STROMAL TUMOUR
     Route: 048
  2. SU-011,248 [Suspect]
     Route: 048
  3. AMLODIPINE [Concomitant]
     Route: 048
  4. SODIUM CHLORIDE [Concomitant]
     Route: 042
     Dates: start: 20060807, end: 20060807
  5. PHENIRAMINE MALEATE [Concomitant]
     Route: 042
     Dates: start: 20060807, end: 20060807

REACTIONS (2)
  - DYSPNOEA [None]
  - GENERALISED OEDEMA [None]
